FAERS Safety Report 15776862 (Version 2)
Quarter: 2019Q1

REPORT INFORMATION
  Report Type: Spontaneous
  Country: US (occurrence: US)
  Receive Date: 20181231
  Receipt Date: 20190103
  Transmission Date: 20190417
  Serious: No
  Sender: FDA-Public Use
  Company Number: US-PFIZER INC-2018528322

PATIENT
  Age: 53 Year
  Sex: Female
  Weight: 72.56 kg

DRUGS (3)
  1. MYLANTA [Concomitant]
     Active Substance: ALUMINUM HYDROXIDE\DIMETHICONE\MAGNESIUM HYDROXIDE
     Indication: ARTHRITIS
     Dosage: UNK
     Route: 048
  2. NEURONTIN [Suspect]
     Active Substance: GABAPENTIN
     Indication: ARTHRITIS
     Dosage: 100 MG, 3 TIMES A DAY
     Route: 048
     Dates: start: 20181212, end: 20181218
  3. DEXAMETHASONE. [Concomitant]
     Active Substance: DEXAMETHASONE
     Indication: ARTHRITIS
     Dosage: 4 MG, EVERY 8 HOURS
     Route: 048
     Dates: start: 20181212, end: 20181215

REACTIONS (7)
  - Urinary tract infection [Not Recovered/Not Resolved]
  - Somnambulism [Not Recovered/Not Resolved]
  - Vision blurred [Not Recovered/Not Resolved]
  - Urine odour abnormal [Unknown]
  - Anxiety [Not Recovered/Not Resolved]
  - Product use in unapproved indication [Unknown]
  - Headache [Not Recovered/Not Resolved]

NARRATIVE: CASE EVENT DATE: 201812
